FAERS Safety Report 8868406 (Version 1)
Quarter: 2012Q4

REPORT INFORMATION
  Report Type: 
  Country: US (occurrence: US)
  Receive Date: 20121026
  Receipt Date: 20121026
  Transmission Date: 20130627
  Serious: No
  Sender: FDA-Public Use
  Company Number: US-AMGEN-USASP2012041553

PATIENT
  Age: 64 Year
  Sex: Male

DRUGS (2)
  1. ENBREL [Suspect]
     Indication: PSORIATIC ARTHROPATHY
     Dosage: 50 mg, UNK
     Dates: start: 20070301, end: 201202
  2. METHOTREXATE [Concomitant]
     Dosage: UNK UNK, qwk
     Dates: start: 2004

REACTIONS (6)
  - Arthralgia [Not Recovered/Not Resolved]
  - Mobility decreased [Not Recovered/Not Resolved]
  - Psoriatic arthropathy [Not Recovered/Not Resolved]
  - Injection site erythema [Recovered/Resolved]
  - Injection site pruritus [Recovered/Resolved]
  - Prostate infection [Recovered/Resolved]
